FAERS Safety Report 23768471 (Version 1)
Quarter: 2024Q2

REPORT INFORMATION
  Report Type: Spontaneous
  Country: US (occurrence: US)
  Receive Date: 20240422
  Receipt Date: 20240422
  Transmission Date: 20240716
  Serious: No
  Sender: FDA-Public Use
  Company Number: US-MELINTA THERAPEUTICS, LLC-US-MLNT-23-00645

PATIENT

DRUGS (3)
  1. METOPROLOL SUCCINATE [Suspect]
     Active Substance: METOPROLOL SUCCINATE
     Indication: Product used for unknown indication
     Dosage: NOT PROVIDED
     Route: 048
  2. METOPROLOL SUCCINATE [Suspect]
     Active Substance: METOPROLOL SUCCINATE
     Dosage: REDUCED TO 25 MILLIGRAM, BID
     Route: 048
  3. LYNPARZA [Suspect]
     Active Substance: OLAPARIB
     Indication: Product used for unknown indication
     Dosage: 300 MILLIGRAM, BID

REACTIONS (3)
  - Blood pressure decreased [Unknown]
  - Fatigue [Unknown]
  - Inappropriate schedule of product administration [Unknown]
